FAERS Safety Report 9200964 (Version 1)
Quarter: 2013Q2

REPORT INFORMATION
  Report Type: Spontaneous
  Country: BE (occurrence: BE)
  Receive Date: 20130401
  Receipt Date: 20130401
  Transmission Date: 20140414
  Serious: Yes (Other)
  Sender: FDA-Public Use
  Company Number: BE-JNJFOC-20121014905

PATIENT
  Age: 73 Year
  Sex: Male

DRUGS (8)
  1. ZYTIGA [Suspect]
     Indication: PROSTATE CANCER
     Route: 048
     Dates: end: 20121025
  2. ZYTIGA [Suspect]
     Indication: PROSTATE CANCER
     Route: 048
     Dates: start: 20130201
  3. ZYTIGA [Suspect]
     Indication: PROSTATE CANCER
     Route: 048
     Dates: start: 20120907
  4. ZYTIGA [Suspect]
     Indication: PROSTATE CANCER
     Route: 048
     Dates: start: 20120906
  5. ZYTIGA [Suspect]
     Indication: PROSTATE CANCER
     Route: 048
     Dates: start: 20121206, end: 20130131
  6. ZYTIGA [Suspect]
     Indication: PROSTATE CANCER
     Route: 048
     Dates: start: 20121113, end: 20121205
  7. ZYTIGA [Suspect]
     Indication: PROSTATE CANCER
     Route: 048
     Dates: start: 20121030, end: 20121105
  8. XGEVA [Concomitant]
     Indication: PRODUCT USED FOR UNKNOWN INDICATION
     Route: 065

REACTIONS (2)
  - Liver function test abnormal [Recovered/Resolved]
  - Hepatotoxicity [Unknown]
